FAERS Safety Report 19904884 (Version 1)
Quarter: 2021Q4

REPORT INFORMATION
  Report Type: Spontaneous
  Country: TR (occurrence: TR)
  Receive Date: 20211001
  Receipt Date: 20211001
  Transmission Date: 20220303
  Serious: Yes (Hospitalization, Other)
  Sender: FDA-Public Use
  Company Number: TR-QUAGEN-2021QUALIT00066

PATIENT
  Age: 68 Year
  Sex: Male

DRUGS (2)
  1. TRIAMCINOLONE ACETONIDE [Suspect]
     Active Substance: TRIAMCINOLONE ACETONIDE
     Indication: Epicondylitis
     Dosage: CC
     Route: 065
  2. PRILOCAINE [Suspect]
     Active Substance: PRILOCAINE
     Indication: Epicondylitis
     Dosage: CC
     Route: 065

REACTIONS (1)
  - Radial nerve palsy [Recovered/Resolved]
